FAERS Safety Report 25715688 (Version 1)
Quarter: 2025Q3

REPORT INFORMATION
  Report Type: Spontaneous
  Country: JP (occurrence: JP)
  Receive Date: 20250822
  Receipt Date: 20250822
  Transmission Date: 20251020
  Serious: Yes (Death, Hospitalization, Other)
  Sender: MERCK SHARP & DOHME LLC
  Company Number: JP-009507513-2319232

PATIENT
  Age: 30 Year
  Sex: Female

DRUGS (4)
  1. KEYTRUDA [Suspect]
     Active Substance: PEMBROLIZUMAB
     Indication: Cervix carcinoma recurrent
     Route: 041
     Dates: start: 2024, end: 202508
  2. PACLITAXEL [Suspect]
     Active Substance: PACLITAXEL
     Indication: Cervix carcinoma recurrent
     Dates: start: 2024, end: 2025
  3. CARBOPLATIN [Suspect]
     Active Substance: CARBOPLATIN
     Indication: Cervix carcinoma recurrent
     Dates: start: 2024, end: 2025
  4. BEVACIZUMAB [Suspect]
     Active Substance: BEVACIZUMAB
     Indication: Cervix carcinoma recurrent
     Dates: start: 2024, end: 202508

REACTIONS (5)
  - Malignant neoplasm progression [Fatal]
  - Radiation pneumonitis [Unknown]
  - Intestinal perforation [Unknown]
  - Pleural effusion [Unknown]
  - Mediastinal disorder [Unknown]

NARRATIVE: CASE EVENT DATE: 20250101
